FAERS Safety Report 9797177 (Version 1)
Quarter: 2014Q1

REPORT INFORMATION
  Report Type: Spontaneous
  Country: US (occurrence: None)
  Receive Date: 20140102
  Receipt Date: 20140102
  Transmission Date: 20141002
  Serious: No
  Sender: FDA-Public Use
  Company Number: None

PATIENT
  Age: 65 Year
  Sex: Male
  Weight: 95.26 kg

DRUGS (1)
  1. CREST PRO-HEALTH [Suspect]
     Indication: DENTAL CLEANING

REACTIONS (1)
  - Skin exfoliation [None]
